FAERS Safety Report 9336506 (Version 2)
Quarter: 2013Q4

REPORT INFORMATION
  Report Type: Spontaneous
  Country: US (occurrence: US)
  Receive Date: 20130607
  Receipt Date: 20131018
  Transmission Date: 20140711
  Serious: No
  Sender: FDA-Public Use
  Company Number: US-PFIZER INC-2013170052

PATIENT
  Age: 61 Year
  Sex: Female

DRUGS (13)
  1. XELJANZ [Suspect]
     Indication: RHEUMATOID ARTHRITIS
     Dosage: 5 MG (1 TABLET) TWICE A DAY
     Route: 048
     Dates: start: 201303
  2. XELJANZ [Suspect]
     Dosage: 5 MG, 2X/DAY
     Dates: end: 20131014
  3. JANUVIA [Concomitant]
     Dosage: 25 MG
  4. LASIX [Concomitant]
     Dosage: 20 MG
  5. LORAZEPAM [Concomitant]
     Dosage: 1 MG
  6. GLIPIZIDE/METFORMIN [Concomitant]
     Dosage: GLIPIZIDE 2.5MG/METFORMIN 250MG
  7. TAGAMET HB [Concomitant]
     Dosage: 200 MG
  8. WELLBUTRIN [Concomitant]
     Dosage: 75 MG
  9. TRAZODONE [Concomitant]
     Dosage: 50 MG
  10. LEVOTHYROXINE [Concomitant]
     Dosage: 100 UG
  11. POTASSIUM [Concomitant]
     Dosage: 25 MEQ
  12. FOLIC ACID [Concomitant]
     Dosage: 400 UG
  13. OMEPRAZOLE [Concomitant]
     Dosage: 20 MG

REACTIONS (4)
  - Nasopharyngitis [Recovering/Resolving]
  - Rhinorrhoea [Recovering/Resolving]
  - Upper respiratory tract congestion [Recovering/Resolving]
  - Cough [Recovering/Resolving]
